FAERS Safety Report 17505829 (Version 1)
Quarter: 2020Q1

REPORT INFORMATION
  Report Type: Spontaneous
  Country: US (occurrence: US)
  Receive Date: 20200305
  Receipt Date: 20200305
  Transmission Date: 20200409
  Serious: Yes (Other)
  Sender: FDA-Public Use
  Company Number: US-TARO-2019TAR00826

PATIENT
  Sex: Female

DRUGS (4)
  1. ENALAPRIL MALEATE TABLETS USP 2.5 MG [Suspect]
     Active Substance: ENALAPRIL MALEATE
     Indication: HYPERTENSION
  2. ENALAPRIL MALEATE TABLETS USP 2.5 MG [Suspect]
     Active Substance: ENALAPRIL MALEATE
     Dosage: 5 MG, 2X/DAY
     Dates: start: 20191116, end: 2019
  3. ENALAPRIL MALEATE TABLETS USP 2.5 MG [Suspect]
     Active Substance: ENALAPRIL MALEATE
     Indication: CARDIAC FAILURE
     Dosage: 2.5 MG, 1X/DAY IN THE MORNING
     Dates: start: 2019, end: 2019
  4. ENALAPRIL MALEATE TABLETS USP 2.5 MG [Suspect]
     Active Substance: ENALAPRIL MALEATE
     Dosage: 2.5 MG, 1X/DAY IN THE MORNING
     Dates: start: 2019, end: 2019

REACTIONS (4)
  - Gait disturbance [Recovered/Resolved]
  - Dizziness [Recovered/Resolved]
  - Headache [Recovered/Resolved]
  - Angina pectoris [Recovered/Resolved]

NARRATIVE: CASE EVENT DATE: 2019
